FAERS Safety Report 7555610-X (Version None)
Quarter: 2011Q2

REPORT INFORMATION
  Report Type: 
  Country: None (occurrence: None)
  Receive Date: 20110617
  Receipt Date: 20010221
  Transmission Date: 20111010
  Serious: Yes (Hospitalization)
  Sender: FDA-Public Use
  Company Number: PHEH2001US01293

PATIENT
  Sex: Female

DRUGS (4)
  1. EXELON [Suspect]
     Indication: DEMENTIA ALZHEIMER'S TYPE
     Dosage: 6 MG, BID
     Route: 048
     Dates: start: 20000731
  2. PLAVIX [Concomitant]
     Dosage: UNK
  3. HORMONES [Concomitant]
  4. CORTISONE [Concomitant]

REACTIONS (4)
  - HEMIPARESIS [None]
  - HEMICEPHALALGIA [None]
  - DYSARTHRIA [None]
  - MENTAL STATUS CHANGES [None]
